FAERS Safety Report 8406797-8 (Version None)
Quarter: 2012Q2

REPORT INFORMATION
  Report Type: 
  Country: None (occurrence: None)
  Receive Date: 20120604
  Receipt Date: 20120531
  Transmission Date: 20120825
  Serious: Yes (Death)
  Sender: FDA-Public Use
  Company Number: US-PFIZER INC-2011002455

PATIENT
  Age: 37 Year
  Sex: Female

DRUGS (13)
  1. METFORMIN HCL [Suspect]
     Indication: COMPLETED SUICIDE
     Dosage: UNK
     Route: 048
  2. SIMVASTATIN [Suspect]
     Indication: COMPLETED SUICIDE
     Dosage: UNK
     Route: 048
  3. CLONAZEPAM [Suspect]
     Indication: COMPLETED SUICIDE
     Dosage: UNK
     Route: 048
  4. FENTANYL [Suspect]
     Dosage: UNK
     Route: 048
  5. ARIPIPRAZOLE [Suspect]
     Indication: COMPLETED SUICIDE
     Dosage: UNK
     Route: 048
  6. IBUPROFEN [Suspect]
     Indication: COMPLETED SUICIDE
     Dosage: UNK
     Route: 048
  7. GEMFIBROZIL [Suspect]
     Indication: COMPLETED SUICIDE
     Dosage: UNK
     Route: 048
  8. PREDNISONE [Suspect]
     Indication: COMPLETED SUICIDE
     Dosage: UNK
     Route: 048
  9. DULOXETIME HYDROCHLORIDE [Suspect]
     Indication: COMPLETED SUICIDE
     Dosage: UNK
     Route: 048
  10. OXCARBAZEPINE [Suspect]
     Indication: COMPLETED SUICIDE
     Dosage: UNK
     Route: 048
  11. TOPIRAMATE [Suspect]
     Indication: COMPLETED SUICIDE
     Dosage: UNK
     Route: 048
  12. RANITIDINE [Suspect]
     Indication: COMPLETED SUICIDE
     Dosage: UNK
     Route: 048
  13. LEVOXYL [Suspect]
     Indication: COMPLETED SUICIDE
     Dosage: UNK
     Route: 048

REACTIONS (3)
  - COMPLETED SUICIDE [None]
  - RESPIRATORY ARREST [None]
  - CARDIAC ARREST [None]
